FAERS Safety Report 6582612-2 (Version None)
Quarter: 2010Q1

REPORT INFORMATION
  Report Type: 
  Country: None (occurrence: None)
  Receive Date: 20100216
  Receipt Date: 20100208
  Transmission Date: 20100710
  Serious: No
  Sender: FDA-Public Use
  Company Number: US-B.I. PHARMACEUTICALS,INC./RIDGEFIELD-2010-BP-01671BP

PATIENT
  Sex: Female

DRUGS (7)
  1. SPIRIVA [Suspect]
     Indication: COUGH
     Dosage: 18 MCG
     Route: 055
     Dates: start: 20100119, end: 20100119
  2. SPIRIVA [Suspect]
     Indication: INCREASED UPPER AIRWAY SECRETION
  3. DIOVAN [Concomitant]
     Indication: HYPERTENSION
  4. WELCHOL [Concomitant]
     Indication: BLOOD CHOLESTEROL INCREASED
  5. GLIPIZIDE [Concomitant]
     Indication: DIABETES MELLITUS
  6. NIFEDIPINE [Concomitant]
     Indication: HYPERTENSION
  7. ASPIRIN [Concomitant]
     Indication: PROPHYLAXIS

REACTIONS (3)
  - CHEILITIS [None]
  - JAW DISORDER [None]
  - LIP SWELLING [None]
